FAERS Safety Report 6872030-1 (Version None)
Quarter: 2010Q3

REPORT INFORMATION
  Report Type: 
  Country: None (occurrence: None)
  Receive Date: 20100723
  Receipt Date: 20100713
  Transmission Date: 20110219
  Serious: Yes (Death, Hospitalization, Other)
  Sender: FDA-Public Use
  Company Number: BR-PFIZER INC-2010084612

PATIENT
  Age: 56 Year
  Sex: Male

DRUGS (4)
  1. SILDENAFIL CITRATE [Suspect]
     Indication: CARDIAC DISORDER
     Dosage: 25 MG (HALF TABLET OF 50MG), 2X/DAY
     Route: 048
     Dates: start: 20080101
  2. CAPTOPRIL [Concomitant]
     Dosage: UNK
  3. FUROSEMIDE [Concomitant]
     Dosage: UNK
  4. INSULIN [Concomitant]
     Indication: DIABETES MELLITUS
     Dosage: UNK

REACTIONS (4)
  - CARDIAC ARREST [None]
  - INFARCTION [None]
  - PERIPHERAL REVASCULARISATION [None]
  - PROCEDURAL COMPLICATION [None]
